FAERS Safety Report 4654255-9 (Version None)
Quarter: 2005Q2

REPORT INFORMATION
  Report Type: 
  Country: None (occurrence: None)
  Receive Date: 20050504
  Receipt Date: 20050421
  Transmission Date: 20051028
  Serious: Yes (Other)
  Sender: FDA-Public Use
  Company Number: 2005064281

PATIENT
  Age: 54 Year
  Sex: Female
  Weight: 88.4514 kg

DRUGS (9)
  1. BEXTRA [Suspect]
     Indication: RHEUMATOID ARTHRITIS
     Dosage: 10 MG (10 MG, 1 IN 1 D), ORAL
     Route: 048
  2. CELEBREX [Suspect]
     Indication: RHEUMATOID ARTHRITIS
     Dosage: (1 IN 1 D), ORAL
     Route: 048
     Dates: start: 19990101
  3. CYCLOBENZAPRINE HCL [Concomitant]
  4. DYAZIDE [Concomitant]
  5. ZYRTEC [Concomitant]
  6. RANITIDINE [Concomitant]
  7. VICOPROFEN [Concomitant]
  8. PAROXETINE HCL [Concomitant]
  9. TOPIRAMATE [Concomitant]

REACTIONS (3)
  - ENDOMETRIAL CANCER [None]
  - GASTRIC DISORDER [None]
  - KIDNEY INFECTION [None]
